FAERS Safety Report 22362317 (Version 2)
Quarter: 2023Q2

REPORT INFORMATION
  Report Type: Spontaneous
  Country: DE (occurrence: DE)
  Receive Date: 20230524
  Receipt Date: 20230530
  Transmission Date: 20230722
  Serious: Yes (Hospitalization)
  Sender: FDA-Public Use
  Company Number: DE-PFIZER INC-202300197081

PATIENT
  Age: 9 Decade
  Sex: Male

DRUGS (1)
  1. TAVOR (LORAZEPAM) [Suspect]
     Active Substance: LORAZEPAM
     Indication: Polyneuropathy
     Dosage: UNK

REACTIONS (3)
  - Lung neoplasm malignant [Unknown]
  - Off label use [Unknown]
  - Wrong technique in product usage process [Unknown]
